FAERS Safety Report 4397560-6 (Version None)
Quarter: 2004Q3

REPORT INFORMATION
  Report Type: 
  Country: None (occurrence: None)
  Receive Date: 20040708
  Receipt Date: 20040628
  Transmission Date: 20050211
  Serious: Yes (Hospitalization)
  Sender: FDA-Public Use
  Company Number: JP-JNJFOC-20040605188

PATIENT
  Age: 56 Year
  Sex: Male

DRUGS (5)
  1. MICONAZOLE [Suspect]
     Indication: OESOPHAGEAL CANDIDIASIS
     Dosage: 20 G, 1 IN 1 DAY, ORAL
     Route: 048
     Dates: start: 20040608, end: 20040611
  2. LAFUTIDINE (ALL OTHER THERAPEUTIC PRODUCTS) [Concomitant]
  3. MAALOX (MAALOX) [Concomitant]
  4. TIMEPIDIUM BROMIDE (TIMEPIDIUM BROMIDE) [Concomitant]
  5. ETIZOLAM (ETIZOLAM) [Concomitant]

REACTIONS (3)
  - OEDEMA MOUTH [None]
  - RASH [None]
  - STOMATITIS [None]
